FAERS Safety Report 4906513-8 (Version None)
Quarter: 2006Q1

REPORT INFORMATION
  Report Type: 
  Country: None (occurrence: None)
  Receive Date: 20060209
  Receipt Date: 20060128
  Transmission Date: 20060701
  Serious: Yes (Other)
  Sender: FDA-Public Use
  Company Number: PHBS2006BE01643

PATIENT
  Age: 53 Year
  Sex: Female

DRUGS (4)
  1. GLEEVEC [Suspect]
     Indication: CHRONIC MYELOID LEUKAEMIA
     Dosage: 400 MG/DAY
     Route: 048
  2. NEURONTIN [Concomitant]
     Indication: POLYNEUROPATHY
  3. IMOVANE [Concomitant]
  4. IRON SUPPLEMENTS [Concomitant]
     Indication: ANAEMIA

REACTIONS (7)
  - ABDOMINAL PAIN [None]
  - ANAEMIA [None]
  - BLAST CRISIS IN MYELOGENOUS LEUKAEMIA [None]
  - COLITIS ISCHAEMIC [None]
  - HAEMORRHOIDS [None]
  - MUSCLE SPASMS [None]
  - POLYNEUROPATHY [None]
